FAERS Safety Report 6955250-7 (Version None)
Quarter: 2010Q3

REPORT INFORMATION
  Report Type: 
  Country: None (occurrence: None)
  Receive Date: 20100830
  Receipt Date: 20100819
  Transmission Date: 20110219
  Serious: Yes (Hospitalization)
  Sender: FDA-Public Use
  Company Number: JP-ASTRAZENECA-2010SE39426

PATIENT
  Age: 26114 Day
  Sex: Male

DRUGS (6)
  1. CANDESARTAN CILEXETIL [Suspect]
     Indication: HYPERTENSION
     Route: 048
  2. SELOKEN [Interacting]
     Indication: HYPERTENSION
     Route: 048
  3. ESIDRIX [Interacting]
     Indication: HYPERTENSION
     Route: 048
     Dates: end: 20100701
  4. FOSINOPRIL SODIUM AND HYDROCHLOROTHIAZIDE [Interacting]
     Indication: HYPERTENSION
     Dosage: 20 MG / 12.5 MG , UNKNOWN DOSE DAILY
     Route: 048
  5. LERCANIDIPINE [Interacting]
     Indication: HYPERTENSION
     Route: 048
  6. RILMENIDINE [Interacting]
     Indication: HYPERTENSION
     Route: 048

REACTIONS (2)
  - DRUG INTERACTION [None]
  - HYPOTENSION [None]
